FAERS Safety Report 18553723 (Version 3)
Quarter: 2023Q1

REPORT INFORMATION
  Report Type: Other
  Country: GB (occurrence: GB)
  Receive Date: 20201127
  Receipt Date: 20230113
  Transmission Date: 20230417
  Serious: Yes (Death, Hospitalization)
  Sender: FDA-Public Use
  Company Number: None

PATIENT
  Age: 79 Year
  Sex: Female

DRUGS (10)
  1. AMLODIPINE [Suspect]
     Active Substance: AMLODIPINE BESYLATE
     Indication: Product used for unknown indication
     Dosage: 10 MILLIGRAM (PER DAY)
     Route: 065
  2. WARFARIN [Suspect]
     Active Substance: WARFARIN
     Indication: Product used for unknown indication
     Dosage: 1 MILLIGRAM (PER DAY)  (AS PER INTERNATIONAL NORMALISED RATIO (INR))
     Route: 065
  3. LETROZOLE [Suspect]
     Active Substance: LETROZOLE
     Indication: Product used for unknown indication
     Dosage: 7.5 MILLIGRAM (PER DAY)
     Route: 065
  4. FUROSEMIDE [Suspect]
     Active Substance: FUROSEMIDE
     Indication: Product used for unknown indication
     Dosage: 80 MILLIGRAM (PER DAY)
     Route: 065
  5. BISOPROLOL [Suspect]
     Active Substance: BISOPROLOL
     Indication: Product used for unknown indication
     Dosage: 10 MILLIGRAM (PER DAY)
     Route: 065
  6. RAMIPRIL [Suspect]
     Active Substance: RAMIPRIL
     Indication: Product used for unknown indication
     Dosage: 10 MILLIGRAM (PER DAY)
     Route: 065
  7. CLOPIDOGREL [Suspect]
     Active Substance: CLOPIDOGREL BISULFATE
     Indication: Product used for unknown indication
     Dosage: 75 MILLIGRAM (PER DAY)
     Route: 065
  8. FENOFIBRATE [Suspect]
     Active Substance: FENOFIBRATE
     Indication: Product used for unknown indication
     Dosage: 160 MILLIGRAM (PER DAY)
     Route: 065
  9. FENOFIBRATE [Suspect]
     Active Substance: FENOFIBRATE
     Dosage: 160 MILLIGRAM (PER DAY) (FENOFIBRATE)
     Route: 065
  10. UMECLIDINIUM BROMIDE\VILANTEROL TRIFENATATE [Suspect]
     Active Substance: UMECLIDINIUM BROMIDE\VILANTEROL TRIFENATATE
     Indication: Product used for unknown indication
     Dosage: 1 DOSAGE FORM/DAY
     Route: 055

REACTIONS (40)
  - Dilatation ventricular [Fatal]
  - Decreased appetite [Fatal]
  - Orthopnoea [Fatal]
  - Hepatic steatosis [Fatal]
  - Mucosal dryness [Fatal]
  - Petechiae [Fatal]
  - Pulmonary oedema [Fatal]
  - International normalised ratio increased [Fatal]
  - Nephrosclerosis [Fatal]
  - Jaundice [Fatal]
  - Aortic arteriosclerosis [Fatal]
  - Kidney fibrosis [Fatal]
  - Urine output decreased [Fatal]
  - Dehydration [Fatal]
  - Cholestasis [Fatal]
  - Thirst [Fatal]
  - Abnormal loss of weight [Fatal]
  - Oedema peripheral [Fatal]
  - Change of bowel habit [Fatal]
  - Asthenia [Fatal]
  - Hepatic fibrosis [Fatal]
  - Abdominal distension [Fatal]
  - Ocular icterus [Fatal]
  - Taste disorder [Fatal]
  - Confusional state [Fatal]
  - Hepatic necrosis [Fatal]
  - Pericardial effusion [Fatal]
  - Congestive hepatopathy [Fatal]
  - Hepatorenal failure [Fatal]
  - Ascites [Fatal]
  - Acute kidney injury [Fatal]
  - Haemolysis [Fatal]
  - Pleural effusion [Fatal]
  - Sepsis [Fatal]
  - Hypotension [Fatal]
  - Dyspnoea [Fatal]
  - Skin weeping [Fatal]
  - Lethargy [Fatal]
  - Nausea [Fatal]
  - Epistaxis [Fatal]

NARRATIVE: CASE EVENT DATE: 20200201
